FAERS Safety Report 6873655-X (Version None)
Quarter: 2010Q3

REPORT INFORMATION
  Report Type: 
  Country: None (occurrence: None)
  Receive Date: 20100723
  Receipt Date: 20090507
  Transmission Date: 20110219
  Serious: No
  Sender: FDA-Public Use
  Company Number: US-PFIZER INC-2009164922

PATIENT
  Sex: Female
  Weight: 52.163 kg

DRUGS (3)
  1. CHANTIX [Suspect]
     Indication: SMOKING CESSATION THERAPY
     Dosage: 0.5 MG, 1X/DAY
     Route: 048
     Dates: start: 20090122
  2. VITAMIN B [Concomitant]
     Dosage: UNK
  3. MILK THISTLE [Concomitant]
     Dosage: UNK

REACTIONS (3)
  - DIZZINESS [None]
  - DYSGEUSIA [None]
  - WRONG TECHNIQUE IN DRUG USAGE PROCESS [None]
